FAERS Safety Report 7160615 (Version 11)
Quarter: 2017Q2

REPORT INFORMATION
  Report Type: Spontaneous
  Country: US (occurrence: US)
  Receive Date: 20091028
  Receipt Date: 20170417
  Transmission Date: 20170830
  Serious: Yes (Hospitalization, Disabling)
  Sender: FDA-Public Use
  Company Number: US-BAYER-200936840NA

PATIENT
  Age: 38 Year
  Sex: Female
  Weight: 61 kg

DRUGS (42)
  1. YAZ [Suspect]
     Active Substance: DROSPIRENONE\ETHINYL ESTRADIOL
  2. TORADOL [Concomitant]
     Active Substance: KETOROLAC TROMETHAMINE
     Indication: ENDOMETRIOSIS
     Route: 048
     Dates: start: 2007, end: 20080324
  3. BOVINE FAT [Concomitant]
  4. LACRI-LUBE [Concomitant]
  5. GUAIFENESIN/CODEINE [Concomitant]
     Active Substance: CODEINE PHOSPHATE\GUAIFENESIN
     Dosage: 100-10 MG/5 ML. ONE TO TWO TABLESPOONS WERE TAKEN EVERY FOUR HOURS
     Route: 048
     Dates: start: 20071024
  6. AMPICILLIN [Concomitant]
     Active Substance: AMPICILLIN
     Dosage: UNK
     Dates: start: 20080607
  7. PHENYLEPHRINE [Concomitant]
     Active Substance: PHENYLEPHRINE\PHENYLEPHRINE HYDROCHLORIDE
  8. ONDANSETRON [Concomitant]
     Active Substance: ONDANSETRON
  9. VENTOLIN [Concomitant]
     Active Substance: ALBUTEROL SULFATE
  10. ORAJEL [Concomitant]
     Active Substance: ALLANTOIN\BENZOCAINE\CAMPHOR (NATURAL)\DIMETHICONE\MENTHOL
  11. DICYCLOMINE [Concomitant]
     Active Substance: DICYCLOMINE HYDROCHLORIDE
     Dosage: ONE TO TWO CAPSULES WERE USED THREE TIMES A DAY
     Route: 048
     Dates: start: 20080321
  12. MEROPENEM. [Concomitant]
     Active Substance: MEROPENEM
  13. SIMVASTATIN. [Concomitant]
     Active Substance: SIMVASTATIN
  14. GENTAMYCIN [Concomitant]
     Active Substance: GENTAMICIN
  15. DILAUDID [Concomitant]
     Active Substance: HYDROMORPHONE HYDROCHLORIDE
  16. LOPRESSOR [Concomitant]
     Active Substance: METOPROLOL TARTRATE
  17. COLACE [Concomitant]
     Active Substance: DOCUSATE SODIUM
  18. FLAGYL [Concomitant]
     Active Substance: METRONIDAZOLE\METRONIDAZOLE HYDROCHLORIDE
  19. ZEGERID [Concomitant]
     Active Substance: OMEPRAZOLE\SODIUM BICARBONATE
  20. MORPHINE SULFATE. [Concomitant]
     Active Substance: MORPHINE SULFATE
  21. SODIUM CHLORIDE. [Concomitant]
     Active Substance: SODIUM CHLORIDE
  22. MANNITOL. [Concomitant]
     Active Substance: MANNITOL
  23. VANCOCIN [Concomitant]
     Active Substance: VANCOMYCIN HYDROCHLORIDE
  24. METRONIDAZOLE. [Concomitant]
     Active Substance: METRONIDAZOLE
  25. DIPRIVAN [Concomitant]
     Active Substance: PROPOFOL
  26. ATROVENT [Concomitant]
     Active Substance: IPRATROPIUM BROMIDE
  27. PEPCID [Concomitant]
     Active Substance: FAMOTIDINE
  28. HEPARIN [Concomitant]
     Active Substance: HEPARIN SODIUM
  29. DULCOLAX (DOCUSATE SODIUM) [Concomitant]
     Active Substance: DOCUSATE SODIUM
  30. POTASSIUM CHLORIDE. [Concomitant]
     Active Substance: POTASSIUM CHLORIDE
  31. MURO 128 [Concomitant]
     Active Substance: SODIUM CHLORIDE
  32. NOVOLOG [Concomitant]
     Active Substance: INSULIN ASPART
  33. ATIVAN [Concomitant]
     Active Substance: LORAZEPAM
  34. METOPROLOL. [Concomitant]
     Active Substance: METOPROLOL
  35. YASMIN [Suspect]
     Active Substance: DROSPIRENONE\ETHINYL ESTRADIOL
     Indication: ACNE
     Dosage: UNK
     Route: 048
     Dates: start: 20080430, end: 20080607
  36. YASMIN [Suspect]
     Active Substance: DROSPIRENONE\ETHINYL ESTRADIOL
     Indication: ACNE
     Dosage: UNK
  37. KETOROLAC [Concomitant]
     Active Substance: KETOROLAC\KETOROLAC TROMETHAMINE
  38. ZOCOR [Concomitant]
     Active Substance: SIMVASTATIN
  39. APRESOLINE HYDROCHLORIDE [Concomitant]
     Active Substance: HYDRALAZINE HYDROCHLORIDE
  40. MERREM [Concomitant]
     Active Substance: MEROPENEM
  41. MYCELEX [Concomitant]
     Active Substance: CLOTRIMAZOLE
  42. INSULIN [Concomitant]
     Active Substance: INSULIN NOS

REACTIONS (21)
  - Balance disorder [Recovered/Resolved]
  - Gait disturbance [Recovered/Resolved]
  - Headache [Recovered/Resolved]
  - Amnesia [Recovered/Resolved]
  - Brain oedema [Recovered/Resolved]
  - Impaired driving ability [Recovered/Resolved]
  - Hemiparesis [Recovered/Resolved]
  - Cognitive disorder [Recovered/Resolved]
  - Speech disorder [Recovered/Resolved]
  - Nausea [Recovered/Resolved]
  - Anxiety [Not Recovered/Not Resolved]
  - Mental impairment [Recovered/Resolved]
  - Vomiting [Recovered/Resolved]
  - Fatigue [Recovered/Resolved]
  - Dysstasia [Recovered/Resolved]
  - Pain [Recovered/Resolved]
  - Depression [Not Recovered/Not Resolved]
  - Post-traumatic stress disorder [Recovered/Resolved]
  - Cerebrovascular accident [Recovered/Resolved]
  - Confusional state [Recovered/Resolved]
  - Psychological trauma [None]

NARRATIVE: CASE EVENT DATE: 20080607
